FAERS Safety Report 16920461 (Version 1)
Quarter: 2019Q4

REPORT INFORMATION
  Report Type: Spontaneous
  Country: US (occurrence: US)
  Receive Date: 20190823
  Receipt Date: 20190823
  Transmission Date: 20200122
  Serious: No
  Sender: FDA-Public Use
  Company Number: None

PATIENT

DRUGS (2)
  1. OPSUMIT [Concomitant]
     Active Substance: MACITENTAN
  2. TADALAFIL 20MG TAB [Suspect]
     Active Substance: TADALAFIL
     Route: 048
     Dates: start: 20161025

REACTIONS (1)
  - Deafness [None]

NARRATIVE: CASE EVENT DATE: 20190823
